FAERS Safety Report 25908029 (Version 1)
Quarter: 2025Q4

REPORT INFORMATION
  Report Type: Spontaneous
  Country: EU (occurrence: EU)
  Receive Date: 20251010
  Receipt Date: 20251010
  Transmission Date: 20260117
  Serious: Yes (Hospitalization)
  Sender: ALEXION PHARMACEUTICALS
  Company Number: None

PATIENT
  Age: 75 Year
  Sex: Female

DRUGS (7)
  1. TICAGRELOR [Interacting]
     Active Substance: TICAGRELOR
     Indication: Acute coronary syndrome
     Dosage: 1 CP CADA 12 HORAS
  2. ATORVASTATIN CALCIUM [Interacting]
     Active Substance: ATORVASTATIN CALCIUM
     Indication: Acute coronary syndrome
     Dosage: 1 CP CADA 24 HORAS
     Dates: start: 20241028, end: 20250612
  3. Lorazepam vir [Concomitant]
     Indication: Anxiety
     Dosage: 5 CP CADA 24 HORAS
  4. Levotiroxina sanofi [Concomitant]
     Indication: Hypothyroidism
     Dosage: 1 CP CADA 24 HORAS
  5. HYDROCHLOROTHIAZIDE\TELMISARTAN [Concomitant]
     Active Substance: HYDROCHLOROTHIAZIDE\TELMISARTAN
     Indication: Hypertension
     Dosage: 1 CP CADA 24 HORAS
  6. BISOPROLOL FUMARATE [Concomitant]
     Active Substance: BISOPROLOL FUMARATE
     Indication: Acute coronary syndrome
     Dosage: 1 CP CADA 12 HORAS
  7. ESOMEPRAZOLE [Concomitant]
     Active Substance: ESOMEPRAZOLE
     Indication: Prophylaxis
     Dosage: 1 CP CADA 24 HORAS

REACTIONS (2)
  - Hypertransaminasaemia [Recovered/Resolved]
  - Hyperbilirubinaemia [Recovered/Resolved]

NARRATIVE: CASE EVENT DATE: 20250611
